FAERS Safety Report 17564445 (Version 5)
Quarter: 2021Q1

REPORT INFORMATION
  Report Type: Spontaneous
  Country: JP (occurrence: JP)
  Receive Date: 20200320
  Receipt Date: 20210329
  Transmission Date: 20210419
  Serious: Yes (Life-Threatening, Other)
  Sender: FDA-Public Use
  Company Number: JP-BEH-2020114664

PATIENT
  Age: 69 Year
  Sex: Female
  Weight: 75 kg

DRUGS (28)
  1. LENDORMIN [Concomitant]
     Active Substance: BROTIZOLAM
  2. REBAMIPIDE [Concomitant]
     Active Substance: REBAMIPIDE
     Dosage: 100 MILLIGRAM, TID
     Route: 048
     Dates: start: 20121106
  3. VESICARE [Concomitant]
     Active Substance: SOLIFENACIN SUCCINATE
     Dosage: 5 MILLIGRAM, QD
     Route: 048
     Dates: start: 20180327
  4. CILOSTAZOL. [Concomitant]
     Active Substance: CILOSTAZOL
     Dosage: 100 MILLIGRAM
     Route: 048
  5. KIPRES [Concomitant]
     Active Substance: MONTELUKAST SODIUM
     Dosage: 10 MILLIGRAM, QD
     Route: 048
  6. SENNOSIDE A [Concomitant]
     Active Substance: SENNOSIDE A
     Dosage: 24 MILLIGRAM
     Route: 048
  7. AMBROXOL [Concomitant]
     Active Substance: AMBROXOL
     Dosage: 15 MILLIGRAM, TID
     Route: 048
     Dates: start: 20121106
  8. HIZENTRA [Suspect]
     Active Substance: HUMAN IMMUNOGLOBULIN G
     Indication: CHRONIC INFLAMMATORY DEMYELINATING POLYRADICULONEUROPATHY
     Dosage: 8 GRAM, SINGLE ONCE
     Route: 058
     Dates: start: 20191008, end: 20191008
  9. MYSLEE [Concomitant]
     Active Substance: ZOLPIDEM TARTRATE
  10. EPERISONE HYDROCHLORIDE [Concomitant]
     Active Substance: EPERISONE HYDROCHLORIDE
     Dosage: 50 MILLIGRAM, TID
     Route: 048
     Dates: start: 20121106
  11. PLETAAL [Concomitant]
     Active Substance: CILOSTAZOL
     Dosage: 100 MILLIGRAM, QD
     Route: 048
     Dates: start: 20121106
  12. ALENDRONATE [Concomitant]
     Active Substance: ALENDRONATE SODIUM
     Dosage: 35 MILLIGRAM
     Route: 048
  13. EURAX [Concomitant]
     Active Substance: CROTAMITON
     Route: 065
  14. HIZENTRA [Suspect]
     Active Substance: HUMAN IMMUNOGLOBULIN G
     Dosage: 20 GRAM, QW 16 TIMES
     Route: 058
     Dates: start: 20191015, end: 20200217
  15. PREDONINE [PREDNISOLONE ACETATE] [Concomitant]
     Active Substance: PREDNISOLONE ACETATE
     Dosage: 20 MILLIGRAM, QD
     Route: 048
     Dates: start: 200511
  16. PURSENNIDE [SENNOSIDE A+B CALCIUM] [Concomitant]
     Dosage: 24 MILLIGRAM, QD
     Route: 048
     Dates: start: 20121116
  17. MAGMITT [Concomitant]
     Active Substance: MAGNESIUM OXIDE
     Dosage: 330 MILLIGRAM, TID
     Route: 048
     Dates: start: 20121106
  18. NEXIUM [Concomitant]
     Active Substance: ESOMEPRAZOLE MAGNESIUM
     Dosage: 20 MILLIGRAM, QD
     Route: 048
     Dates: start: 20161211
  19. LYRICA [Concomitant]
     Active Substance: PREGABALIN
     Dosage: 75 MILLIGRAM, BID
     Route: 048
     Dates: start: 20180307
  20. FOSAMAC [Concomitant]
     Active Substance: ALENDRONATE SODIUM
     Dosage: 35 MILLIGRAM, QD
     Route: 048
     Dates: start: 20121106
  21. RELVAR [Concomitant]
     Active Substance: FLUTICASONE FUROATE\VILANTEROL TRIFENATATE
  22. HUMAN NORMAL IMMUNOGLOBULIN [Concomitant]
     Active Substance: HUMAN IMMUNOGLOBULIN G
     Route: 042
  23. METHYCOBAL [Concomitant]
     Active Substance: METHYLCOBALAMIN
     Dosage: 500 MICROGRAM, TID
     Route: 048
     Dates: start: 20121106
  24. SINGULAIR [Concomitant]
     Active Substance: MONTELUKAST SODIUM
     Dosage: 10 MILLIGRAM, QD
     Route: 048
     Dates: start: 20180405
  25. OLOPATADINE. [Concomitant]
     Active Substance: OLOPATADINE
     Dosage: 10 MILLIGRAM
     Route: 048
  26. CELECOX [Concomitant]
     Active Substance: CELECOXIB
     Dosage: 100 MILLIGRAM, BID
     Route: 048
     Dates: start: 20190819
  27. AMLODIPINE [Concomitant]
     Active Substance: AMLODIPINE BESYLATE
     Dosage: 5 MILLIGRAM, QD
     Route: 048
     Dates: start: 20121106
  28. ALLELOCK [Concomitant]
     Active Substance: OLOPATADINE HYDROCHLORIDE
     Dosage: 1 DOSAGE FORM (5), BID
     Route: 048
     Dates: start: 20121106

REACTIONS (12)
  - Rash [Recovering/Resolving]
  - Cutaneous symptom [Recovered/Resolved with Sequelae]
  - Chronic inflammatory demyelinating polyradiculoneuropathy [Unknown]
  - Rash vesicular [Recovering/Resolving]
  - Conjunctival disorder [Recovering/Resolving]
  - Cutaneous symptom [Recovered/Resolved with Sequelae]
  - Blister [Recovering/Resolving]
  - Pruritus [Recovering/Resolving]
  - Headache [Recovered/Resolved]
  - Injection site erythema [Recovered/Resolved]
  - Erythema [Recovering/Resolving]
  - Mucosal inflammation [Recovered/Resolved with Sequelae]

NARRATIVE: CASE EVENT DATE: 20191008
